FAERS Safety Report 7782544-8 (Version None)
Quarter: 2011Q3

REPORT INFORMATION
  Report Type: 
  Country: None (occurrence: None)
  Receive Date: 20110927
  Receipt Date: 20110927
  Transmission Date: 20111222
  Serious: Yes (Hospitalization)
  Sender: FDA-Public Use
  Company Number: None

PATIENT
  Age: 63 Year
  Weight: 57.5 kg

DRUGS (1)
  1. PIPERACILLIN AND TAZOBACTAM [Suspect]
     Indication: ABDOMINAL ABSCESS
     Dosage: 3.375 GM QID IV
     Route: 042
     Dates: start: 20110618, end: 20110630

REACTIONS (1)
  - CLOSTRIDIUM DIFFICILE COLITIS [None]
